FAERS Safety Report 15365492 (Version 1)
Quarter: 2018Q3

REPORT INFORMATION
  Report Type: Spontaneous
  Country: US (occurrence: US)
  Receive Date: 20180831
  Receipt Date: 20180831
  Transmission Date: 20181010
  Serious: Yes (Disabling)
  Sender: FDA-Public Use
  Company Number: None

PATIENT
  Age: 28 Year
  Sex: Male
  Weight: 90 kg

DRUGS (1)
  1. OCEAN SALINE NASAL SPRAY [Suspect]
     Active Substance: SODIUM CHLORIDE
     Indication: NASAL CONGESTION
     Dosage: ?          OTHER ROUTE:NASAL SPRAY?
     Dates: start: 20170920, end: 20180117

REACTIONS (7)
  - Lip infection [None]
  - Product use issue [None]
  - Oral infection [None]
  - Staphylococcal infection [None]
  - Instillation site infection [None]
  - Suspected transmission of an infectious agent via product [None]
  - Instillation site rash [None]

NARRATIVE: CASE EVENT DATE: 20180306
